FAERS Safety Report 7579898 (Version 3)
Quarter: 2015Q1

REPORT INFORMATION
  Report Type: Spontaneous
  Country: US (occurrence: US)
  Receive Date: 20100910
  Receipt Date: 20150326
  Transmission Date: 20150721
  Serious: Yes (Life-Threatening, Hospitalization, Congenital Anomaly, Other)
  Sender: FDA-Public Use
  Company Number: US-ELI_LILLY_AND_COMPANY-US201008008824

PATIENT
  Age: 1 Day

DRUGS (8)
  1. PROZAC [Suspect]
     Active Substance: FLUOXETINE HYDROCHLORIDE
     Indication: ANXIETY
     Route: 064
  2. PROZAC [Suspect]
     Active Substance: FLUOXETINE HYDROCHLORIDE
     Indication: ANXIETY
     Route: 064
  3. BUSPAR [Concomitant]
     Active Substance: BUSPIRONE HYDROCHLORIDE
     Route: 064
  4. IBUPROFEN. [Concomitant]
     Active Substance: IBUPROFEN
     Route: 064
  5. ZANTAC [Concomitant]
     Active Substance: RANITIDINE HYDROCHLORIDE
     Route: 064
  6. BUSPAR [Concomitant]
     Active Substance: BUSPIRONE HYDROCHLORIDE
     Route: 064
  7. IBUPROFEN. [Concomitant]
     Active Substance: IBUPROFEN
     Route: 064
  8. ZANTAC [Concomitant]
     Active Substance: RANITIDINE HYDROCHLORIDE
     Route: 064

REACTIONS (6)
  - Congenital tricuspid valve atresia [Unknown]
  - Foetal exposure during pregnancy [Recovered/Resolved]
  - Pericardial effusion [Recovered/Resolved]
  - Atrial septal defect [Recovered/Resolved]
  - Congenital pulmonary valve atresia [Unknown]
  - Hypoplastic right heart syndrome [Unknown]

NARRATIVE: CASE EVENT DATE: 19931215
